FAERS Safety Report 6369005-8 (Version None)
Quarter: 2009Q3

REPORT INFORMATION
  Report Type: 
  Country: None (occurrence: None)
  Receive Date: 20090922
  Receipt Date: 20090917
  Transmission Date: 20100115
  Serious: Yes (Hospitalization)
  Sender: FDA-Public Use
  Company Number: US-ELI_LILLY_AND_COMPANY-US200909004341

PATIENT
  Sex: Male
  Weight: 136.5 kg

DRUGS (5)
  1. BYETTA [Suspect]
     Indication: TYPE 2 DIABETES MELLITUS
     Dosage: 10 UG, 2/D
     Route: 058
     Dates: start: 20070101
  2. METFORMIN HCL [Concomitant]
     Indication: TYPE 2 DIABETES MELLITUS
  3. GLIPIZIDE [Concomitant]
     Indication: TYPE 2 DIABETES MELLITUS
  4. AMLODIPINE [Concomitant]
     Indication: BLOOD PRESSURE INCREASED
     Dates: start: 20080101
  5. SIMVASTATIN [Concomitant]
     Indication: BLOOD PRESSURE INCREASED
     Dates: start: 20080101

REACTIONS (8)
  - ABASIA [None]
  - CEREBROVASCULAR ACCIDENT [None]
  - DYSARTHRIA [None]
  - DYSGRAPHIA [None]
  - FALL [None]
  - HALLUCINATION [None]
  - INSOMNIA [None]
  - MEMORY IMPAIRMENT [None]
